FAERS Safety Report 19245923 (Version 1)
Quarter: 2021Q2

REPORT INFORMATION
  Report Type: Other
  Country: PT (occurrence: PT)
  Receive Date: 20210511
  Receipt Date: 20210511
  Transmission Date: 20210717
  Serious: Yes (Other)
  Sender: FDA-Public Use
  Company Number: PT-ROCHE-2828291

PATIENT

DRUGS (3)
  1. RITUXIMAB. [Suspect]
     Active Substance: RITUXIMAB
     Dosage: 1 GRAM
     Route: 041
     Dates: start: 201810
  2. RITUXIMAB. [Suspect]
     Active Substance: RITUXIMAB
     Indication: MULTIPLE SCLEROSIS
     Dosage: 1 GRAM
     Route: 041
     Dates: start: 201810
  3. RITUXIMAB. [Suspect]
     Active Substance: RITUXIMAB
     Dosage: 5 DAYS OF MEGADOSES EACH 4 WEEKS
     Route: 041

REACTIONS (2)
  - Off label use [Unknown]
  - Multiple sclerosis [Recovering/Resolving]
